FAERS Safety Report 7477626-4 (Version None)
Quarter: 2011Q2

REPORT INFORMATION
  Report Type: 
  Country: None (occurrence: None)
  Receive Date: 20110513
  Receipt Date: 20101227
  Transmission Date: 20111010
  Serious: Yes (Hospitalization, Other)
  Sender: FDA-Public Use
  Company Number: US-BAYER-201034356NA

PATIENT
  Age: 36 Year
  Sex: Female
  Weight: 81.633 kg

DRUGS (10)
  1. ALBUTEROL [Concomitant]
     Indication: DYSPNOEA
     Dosage: UNK
     Dates: start: 20011201
  2. ADVAIR DISKUS 100/50 [Concomitant]
     Dosage: UNK
     Dates: start: 20011201
  3. SPIRONOLACTONE [Concomitant]
     Indication: ACNE CYSTIC
     Dosage: UNK
     Dates: start: 20071101, end: 20080201
  4. YAZ [Suspect]
     Indication: ACNE
     Route: 048
     Dates: start: 20070301, end: 20080901
  5. YASMIN [Suspect]
     Indication: ACNE
     Route: 048
     Dates: start: 20070301, end: 20080901
  6. ZYRTEC DAIICHI [Concomitant]
     Indication: MULTIPLE ALLERGIES
  7. DROSPIRENONE AND ETHINYL ESTRADIOL [Suspect]
     Indication: CONTRACEPTION
     Dosage: UNK
     Dates: start: 20081007, end: 20090901
  8. YAZ [Suspect]
     Route: 048
     Dates: start: 20041001, end: 20050901
  9. IMITREX [Concomitant]
     Indication: MIGRAINE
     Dosage: UNK
     Dates: start: 20050501
  10. YASMIN [Suspect]
     Indication: CONTRACEPTION
     Route: 048
     Dates: start: 20041001, end: 20050901

REACTIONS (6)
  - ABDOMINAL PAIN [None]
  - CHOLECYSTITIS CHRONIC [None]
  - ABDOMINAL PAIN UPPER [None]
  - CONSTIPATION [None]
  - MENTAL DISORDER [None]
  - BILIARY DYSKINESIA [None]
